FAERS Safety Report 14688273 (Version 1)
Quarter: 2018Q1

REPORT INFORMATION
  Report Type: Spontaneous
  Country: US (occurrence: US)
  Receive Date: 20180328
  Receipt Date: 20180328
  Transmission Date: 20180509
  Serious: No
  Sender: FDA-Public Use
  Company Number: US-TEVA-2018-US-865451

PATIENT
  Sex: Female

DRUGS (12)
  1. RUXOLITINIB [Suspect]
     Active Substance: RUXOLITINIB
     Indication: MYELOFIBROSIS
     Route: 048
     Dates: start: 201712
  2. KEFLEX [Concomitant]
     Active Substance: CEPHALEXIN
  3. CALCIUM [Concomitant]
     Active Substance: CALCIUM
  4. ASPIRIN. [Concomitant]
     Active Substance: ASPIRIN
  5. CRANBERRY. [Concomitant]
     Active Substance: CRANBERRY
  6. FOLIC ACID. [Concomitant]
     Active Substance: FOLIC ACID
  7. PROPRANOLOL [Suspect]
     Active Substance: PROPRANOLOL HYDROCHLORIDE
     Route: 065
  8. TYLENOL [Concomitant]
     Active Substance: ACETAMINOPHEN
  9. SUMATRIPTAN. [Concomitant]
     Active Substance: SUMATRIPTAN
  10. SYNTHROID [Concomitant]
     Active Substance: LEVOTHYROXINE SODIUM
  11. IRON [Concomitant]
     Active Substance: IRON
  12. IMODIUM [Concomitant]
     Active Substance: LOPERAMIDE HYDROCHLORIDE

REACTIONS (4)
  - Contusion [Unknown]
  - Headache [Recovered/Resolved]
  - White blood cell count decreased [Unknown]
  - Blood pressure decreased [Unknown]
